FAERS Safety Report 18471592 (Version 2)
Quarter: 2020Q4

REPORT INFORMATION
  Report Type: Spontaneous
  Country: US (occurrence: US)
  Receive Date: 20201105
  Receipt Date: 20201120
  Transmission Date: 20210114
  Serious: Yes (Other)
  Sender: FDA-Public Use
  Company Number: US-BAXTER-2020BAX022547

PATIENT
  Age: 68 Year
  Sex: Female

DRUGS (3)
  1. DOXIL [Suspect]
     Active Substance: DOXORUBICIN HYDROCHLORIDE
     Indication: BREAST CANCER
     Route: 065
  2. PACLITAXEL. [Suspect]
     Active Substance: PACLITAXEL
     Indication: BREAST CANCER
     Route: 065
  3. CYCLOPHOSPHAMIDE FOR INJECTION, USP [Suspect]
     Active Substance: CYCLOPHOSPHAMIDE
     Indication: BREAST CANCER
     Route: 065

REACTIONS (2)
  - Drug ineffective [Unknown]
  - Toxicity to various agents [Unknown]
